FAERS Safety Report 15854969 (Version 2)
Quarter: 2019Q1

REPORT INFORMATION
  Report Type: Report from Study
  Country: NL (occurrence: NL)
  Receive Date: 20190122
  Receipt Date: 20190131
  Transmission Date: 20190417
  Serious: Yes (Hospitalization)
  Sender: FDA-Public Use
  Company Number: NL-ALNYLAM PHARMACEUTICALS, INC.-ALN-2019-000023

PATIENT
  Sex: Male
  Weight: 72.5 kg

DRUGS (4)
  1. TIOTROPIUM [Concomitant]
     Active Substance: TIOTROPIUM
     Indication: CHRONIC OBSTRUCTIVE PULMONARY DISEASE
     Dosage: 18 MICROGRAM, QD
     Route: 055
     Dates: start: 2019
  2. ALN-TTR02 [Suspect]
     Active Substance: PATISIRAN SODIUM
     Indication: HEREDITARY NEUROPATHIC AMYLOIDOSIS
     Dosage: 0.3 MILLIGRAM/KILOGRAM, Q3W
     Route: 042
     Dates: start: 20180426
  3. RETINOL [Concomitant]
     Active Substance: RETINOL
     Indication: SUPPLEMENTATION THERAPY
     Dosage: 2500 INTERNATIONAL UNIT, QD
     Route: 048
     Dates: start: 201804
  4. RIVAROXABAN [Concomitant]
     Active Substance: RIVAROXABAN
     Indication: ATRIAL FIBRILLATION
     Dosage: 20 MILLIGRAM, QD
     Route: 048
     Dates: start: 2016

REACTIONS (1)
  - Ischaemic stroke [Recovering/Resolving]

NARRATIVE: CASE EVENT DATE: 20181213
